FAERS Safety Report 5138363-4 (Version None)
Quarter: 2006Q4

REPORT INFORMATION
  Report Type: 
  Country: None (occurrence: None)
  Receive Date: 20061024
  Receipt Date: 20061013
  Transmission Date: 20070319
  Serious: Yes (Other)
  Sender: FDA-Public Use
  Company Number: 2006116875

PATIENT
  Age: 15 Year
  Sex: Female
  Weight: 48.9885 kg

DRUGS (2)
  1. UNISOM [Suspect]
     Indication: EUPHORIC MOOD
     Dosage: ORAL
     Route: 048
     Dates: start: 20050101
  2. ARIPIPRAZOLE (ARIPIPRAZOLE) [Concomitant]

REACTIONS (2)
  - DRUG DEPENDENCE [None]
  - INTENTIONAL DRUG MISUSE [None]
